FAERS Safety Report 9302721 (Version 2)
Quarter: 2013Q2

REPORT INFORMATION
  Report Type: Spontaneous
  Country: US (occurrence: US)
  Receive Date: 20130522
  Receipt Date: 20130602
  Transmission Date: 20140414
  Serious: Yes (Hospitalization, Other)
  Sender: FDA-Public Use
  Company Number: PHEH2013US010938

PATIENT
  Sex: 0

DRUGS (1)
  1. SANDOSTATIN (OCTREOTIDE ACETATE) [Suspect]
     Dosage: UNK UKN, UNK
     Route: 058

REACTIONS (3)
  - Dyspnoea [Unknown]
  - Anaphylactic reaction [Unknown]
  - Hypersensitivity [Unknown]
